FAERS Safety Report 7321157-9 (Version None)
Quarter: 2011Q1

REPORT INFORMATION
  Report Type: 
  Country: None (occurrence: None)
  Receive Date: 20110228
  Receipt Date: 20110226
  Transmission Date: 20110831
  Serious: Yes (Hospitalization)
  Sender: FDA-Public Use
  Company Number: JP-JNJFOC-20100509713

PATIENT
  Sex: Male
  Weight: 95 kg

DRUGS (1)
  1. ITRIZOLE [Suspect]
     Indication: ONYCHOMYCOSIS
     Route: 048

REACTIONS (6)
  - RASH PAPULAR [None]
  - ERYTHEMA [None]
  - CONJUNCTIVAL HYPERAEMIA [None]
  - DRUG ERUPTION [None]
  - PYREXIA [None]
  - OEDEMA MOUTH [None]
